FAERS Safety Report 5805748-X (Version None)
Quarter: 2008Q3

REPORT INFORMATION
  Report Type: 
  Country: None (occurrence: None)
  Receive Date: 20080708
  Receipt Date: 20080708
  Transmission Date: 20090109
  Serious: Yes (Life-Threatening, Hospitalization)
  Sender: FDA-Public Use
  Company Number: None

PATIENT
  Age: 88 Year
  Sex: Male
  Weight: 79.4 kg

DRUGS (2)
  1. WARFARIN SODIUM [Suspect]
     Indication: ATRIAL FIBRILLATION
     Dosage: 2.5 MG EVERYDAY PO
     Route: 048
     Dates: start: 20080107, end: 20080617
  2. AMIODARONE HCL [Suspect]
     Indication: ATRIAL FIBRILLATION
     Dosage: 200 MG EVERYDAY PO
     Route: 048
     Dates: start: 20070109

REACTIONS (4)
  - FALL [None]
  - HAEMORRHAGE INTRACRANIAL [None]
  - INTERNATIONAL NORMALISED RATIO INCREASED [None]
  - MENTAL STATUS CHANGES [None]
